FAERS Safety Report 6586012-0 (Version None)
Quarter: 2010Q1

REPORT INFORMATION
  Report Type: 
  Country: None (occurrence: None)
  Receive Date: 20100216
  Receipt Date: 20100216
  Transmission Date: 20100710
  Serious: Yes (Hospitalization)
  Sender: FDA-Public Use
  Company Number: None

PATIENT
  Age: 80 Year
  Sex: Male

DRUGS (2)
  1. ENOXAPARIN SODIUM [Suspect]
     Dosage: 70 MG BID SQ
     Route: 058
     Dates: start: 20091226, end: 20100103
  2. WARFARIN SODIUM [Suspect]

REACTIONS (5)
  - ANAEMIA [None]
  - INTERNATIONAL NORMALISED RATIO ABNORMAL [None]
  - LOWER GASTROINTESTINAL HAEMORRHAGE [None]
  - POLYPECTOMY [None]
  - POST PROCEDURAL HAEMORRHAGE [None]
